FAERS Safety Report 11026516 (Version 5)
Quarter: 2015Q3

REPORT INFORMATION
  Report Type: Spontaneous
  Country: US (occurrence: US)
  Receive Date: 20150414
  Receipt Date: 20150720
  Transmission Date: 20151125
  Serious: Yes (Other)
  Sender: FDA-Public Use
  Company Number: US-PFIZER INC-2015080542

PATIENT
  Age: 64 Year
  Sex: Female
  Weight: 63 kg

DRUGS (9)
  1. ZYRTEC [Concomitant]
     Active Substance: CETIRIZINE HYDROCHLORIDE
     Dosage: UNK
  2. FENTANYL. [Concomitant]
     Active Substance: FENTANYL
     Dosage: UNK
  3. ACYCLOVIR. [Concomitant]
     Active Substance: ACYCLOVIR
     Dosage: 400 MG, UNK
  4. SUTENT [Suspect]
     Active Substance: SUNITINIB MALATE
     Indication: THYMOMA MALIGNANT
     Dosage: 50 MG, CYCLIC (25MG X 2 = 50MG, 4 WEEKS ON AND 2 WEEKS OFF,1 WEEK OFF)
     Route: 048
     Dates: start: 20150312, end: 201504
  5. SUTENT [Suspect]
     Active Substance: SUNITINIB MALATE
     Dosage: 25 MG (28 DAYS ON/14 DAYS OFF) W
     Dates: start: 201504, end: 20150601
  6. FLONASE [Concomitant]
     Active Substance: FLUTICASONE PROPIONATE
     Dosage: UNK
  7. ZOFRAN [Concomitant]
     Active Substance: ONDANSETRON HYDROCHLORIDE
     Dosage: UNK
  8. COMPAZINE [Concomitant]
     Active Substance: PROCHLORPERAZINE MALEATE
     Dosage: UNK
  9. COUMADIN [Concomitant]
     Active Substance: WARFARIN SODIUM
     Dosage: UNK

REACTIONS (8)
  - Joint swelling [Unknown]
  - Gastrointestinal haemorrhage [Unknown]
  - Lip pain [Unknown]
  - Hypoaesthesia [Recovering/Resolving]
  - Peripheral swelling [Unknown]
  - Glossodynia [Recovered/Resolved]
  - Epistaxis [Unknown]
  - Product use issue [Unknown]

NARRATIVE: CASE EVENT DATE: 2015
